FAERS Safety Report 7494506-9 (Version None)
Quarter: 2011Q2

REPORT INFORMATION
  Report Type: 
  Country: None (occurrence: None)
  Receive Date: 20110520
  Receipt Date: 20110509
  Transmission Date: 20111010
  Serious: Yes (Hospitalization, Other)
  Sender: FDA-Public Use
  Company Number: PHHY2011CH20046

PATIENT
  Age: 50 Year
  Sex: Male

DRUGS (14)
  1. PROGRAF [Suspect]
     Indication: IMMUNOSUPPRESSION
  2. ROCEPHIN [Concomitant]
  3. METRONIDAZOLE [Concomitant]
  4. NEOMYCIN [Concomitant]
  5. MELPHALAN HYDROCHLORIDE [Concomitant]
     Indication: IMMUNOSUPPRESSION
     Dosage: UNK
     Dates: start: 20101225
  6. SIMULECT [Concomitant]
     Indication: IMMUNOSUPPRESSION
  7. ANTIBIOTICS [Concomitant]
  8. MEROPENEM [Concomitant]
  9. CERTICAN [Suspect]
     Indication: IMMUNOSUPPRESSION
     Dosage: UNK
     Dates: start: 20101225
  10. CANCIDAS [Concomitant]
  11. CELLCEPT [Concomitant]
     Indication: IMMUNOSUPPRESSION
  12. POLYMYXIN [Concomitant]
  13. SANDIMMUNE [Suspect]
     Indication: IMMUNOSUPPRESSION
     Dosage: UNK
     Dates: start: 20101225
  14. TACROLIMUS [Concomitant]

REACTIONS (8)
  - PANCYTOPENIA [None]
  - CENTRAL NERVOUS SYSTEM LESION [None]
  - PYREXIA [None]
  - GRAND MAL CONVULSION [None]
  - PLEURAL EFFUSION [None]
  - ALTERED STATE OF CONSCIOUSNESS [None]
  - METABOLIC ENCEPHALOPATHY [None]
  - ATELECTASIS [None]
